FAERS Safety Report 23397715 (Version 2)
Quarter: 2024Q1

REPORT INFORMATION
  Report Type: Spontaneous
  Country: CA (occurrence: CA)
  Receive Date: 20240112
  Receipt Date: 20240306
  Transmission Date: 20240409
  Serious: Yes (Other)
  Sender: FDA-Public Use
  Company Number: CA-PFIZER INC-202400008788

PATIENT
  Age: 62 Year
  Sex: Male

DRUGS (2)
  1. SOMATROPIN [Suspect]
     Active Substance: SOMATROPIN
     Indication: Growth hormone deficiency
     Dosage: 200 UG, DAILY (7DAYS/WEEK GOQUICK, 5.3 MG)
     Route: 058
     Dates: start: 20180703, end: 2019
  2. SOMATROPIN [Suspect]
     Active Substance: SOMATROPIN
     Dosage: 100 UG, DAILY (7DAYS/WEEK GOQUICK 5.3 MG)
     Route: 058
     Dates: start: 2019

REACTIONS (1)
  - Prostatic disorder [Unknown]
